FAERS Safety Report 7799293-2 (Version None)
Quarter: 2011Q4

REPORT INFORMATION
  Report Type: 
  Country: None (occurrence: None)
  Receive Date: 20111006
  Receipt Date: 20110927
  Transmission Date: 20120403
  Serious: Yes (Hospitalization)
  Sender: FDA-Public Use
  Company Number: GB-ELI_LILLY_AND_COMPANY-GB201109008662

PATIENT
  Age: 54 Year
  Sex: Male

DRUGS (12)
  1. EXENATIDE [Suspect]
     Indication: INSULIN-REQUIRING TYPE 2 DIABETES MELLITUS
     Dosage: 5 UG, BID
  2. ASPIRIN [Concomitant]
  3. LEVOTHYROXINE SODIUM [Concomitant]
  4. AMITRIPTYLINE HCL [Concomitant]
  5. CANDESARTAN CILEXETIL [Concomitant]
  6. GLICLAZIDE [Concomitant]
  7. ROSUVASTATIN [Concomitant]
  8. QUININE SULFATE [Concomitant]
  9. INSULIN GLARGINE [Concomitant]
     Dosage: 116 U, QD
  10. METFORMIN HCL [Concomitant]
     Dosage: 2 G, QD
  11. PREGABALIN [Concomitant]
  12. EXENATIDE [Interacting]
     Dosage: 10 UG, BID

REACTIONS (4)
  - OFF LABEL USE [None]
  - RENAL FAILURE ACUTE [None]
  - POTENTIATING DRUG INTERACTION [None]
  - BODY MASS INDEX DECREASED [None]
